FAERS Safety Report 7775173-3 (Version None)
Quarter: 2011Q3

REPORT INFORMATION
  Report Type: 
  Country: None (occurrence: None)
  Receive Date: 20110923
  Receipt Date: 20110913
  Transmission Date: 20111222
  Serious: Yes (Hospitalization)
  Sender: FDA-Public Use
  Company Number: US-JNJFOC-20110805582

PATIENT
  Age: 74 Year
  Sex: Female

DRUGS (4)
  1. BENADRYL [Suspect]
     Indication: MULTIPLE ALLERGIES
     Route: 048
  2. ANTI-HYPERTENSIVES, UNSPECIFIED [Concomitant]
     Indication: HYPERTENSION
     Route: 065
  3. OTHER DRUGS (UNSPECIFIED) [Concomitant]
     Indication: PRODUCT USED FOR UNKNOWN INDICATION
     Route: 065
  4. BENADRYL [Suspect]
     Route: 048

REACTIONS (2)
  - HYPERTENSION [None]
  - REACTION TO DRUG EXCIPIENTS [None]
